FAERS Safety Report 11224756 (Version 1)
Quarter: 2015Q2

REPORT INFORMATION
  Report Type: Spontaneous
  Country: US (occurrence: US)
  Receive Date: 20150629
  Receipt Date: 20150629
  Transmission Date: 20150821
  Serious: No
  Sender: FDA-Public Use
  Company Number: US-PFIZER INC-2015211497

PATIENT
  Age: 14 Year
  Sex: Male
  Weight: 37 kg

DRUGS (1)
  1. GENOTROPIN [Suspect]
     Active Substance: SOMATROPIN
     Indication: DWARFISM
     Dosage: 2.2 MG, 1X/DAY
     Route: 058
     Dates: start: 20150311

REACTIONS (1)
  - Injection site pain [Not Recovered/Not Resolved]
